FAERS Safety Report 10977851 (Version 4)
Quarter: 2015Q2

REPORT INFORMATION
  Report Type: Spontaneous
  Country: US (occurrence: US)
  Receive Date: 20150402
  Receipt Date: 20150514
  Transmission Date: 20150821
  Serious: Yes (Hospitalization, Other)
  Sender: FDA-Public Use
  Company Number: US-UNITED THERAPEUTICS-UNT-2015-003477

PATIENT
  Age: 64 Year
  Sex: Female
  Weight: 54.42 kg

DRUGS (3)
  1. ADCIRCA [Concomitant]
     Active Substance: TADALAFIL
     Indication: PRODUCT USED FOR UNKNOWN INDICATION
  2. REMODULIN [Suspect]
     Active Substance: TREPROSTINIL
     Indication: PULMONARY ARTERIAL HYPERTENSION
     Dosage: 0.058 ?G/KG, CONTINUING
     Route: 058
     Dates: start: 20131018
  3. REMODULIN [Suspect]
     Active Substance: TREPROSTINIL
     Dosage: 0.062 ?G/KG, CONTINUING
     Route: 058

REACTIONS (8)
  - Blood culture positive [Unknown]
  - Infusion site pruritus [Unknown]
  - Device related infection [Unknown]
  - Infusion site irritation [Unknown]
  - Right ventricular failure [Unknown]
  - Infusion site pain [Unknown]
  - Fluid overload [Unknown]
  - Product contamination [Unknown]

NARRATIVE: CASE EVENT DATE: 201503
